FAERS Safety Report 5492745-X (Version None)
Quarter: 2007Q4

REPORT INFORMATION
  Report Type: 
  Country: None (occurrence: None)
  Receive Date: 20071023
  Receipt Date: 20071012
  Transmission Date: 20080405
  Serious: Yes (Life-Threatening, Hospitalization)
  Sender: FDA-Public Use
  Company Number: PHHO2007RU15970

PATIENT
  Age: 54 Year
  Sex: Male
  Weight: 114.2 kg

DRUGS (5)
  1. LMF237 VS VILDAGLIPTIN VS METFORMIN [Suspect]
     Indication: TYPE 2 DIABETES MELLITUS
     Dosage: DOUBLE BLIND
     Dates: start: 20070607, end: 20070907
  2. METOPROLOL [Concomitant]
     Indication: HYPERTENSION
     Dates: start: 20061101
  3. AMLODIPINE [Concomitant]
     Indication: HYPERTENSION
     Dates: start: 20061102
  4. ENALAPRIL MALEATE [Concomitant]
     Indication: HYPERTENSION
     Dates: start: 20061102
  5. ISOSORBIDE DINITRATE [Concomitant]
     Dosage: UNK, UNK
     Dates: start: 20061102

REACTIONS (3)
  - ACUTE MYOCARDIAL INFARCTION [None]
  - CHEST PAIN [None]
  - DILATATION VENTRICULAR [None]
